FAERS Safety Report 26061724 (Version 1)
Quarter: 2025Q4

REPORT INFORMATION
  Report Type: Spontaneous
  Country: US (occurrence: US)
  Receive Date: 20251118
  Receipt Date: 20251118
  Transmission Date: 20260119
  Serious: No
  Sender: SANDOZ
  Company Number: US-SANDOZ-SDZ2025US085163

PATIENT
  Sex: Female

DRUGS (1)
  1. ALBUTEROL SULFATE [Suspect]
     Active Substance: ALBUTEROL SULFATE
     Indication: Asthma
     Dosage: 1 PUFF EVERY4 HOURS AS NEEDED BUT SHE USUALLY USES IT 1-2 TIMES DAILY AND OCCASIONALLY, SHE WILL USE
     Route: 065

REACTIONS (2)
  - Incorrect dose administered by device [Unknown]
  - Drug delivery system issue [Unknown]
